FAERS Safety Report 9483484 (Version 2)
Quarter: 2013Q3

REPORT INFORMATION
  Report Type: Spontaneous
  Country: US (occurrence: US)
  Receive Date: 20130828
  Receipt Date: 20130828
  Transmission Date: 20140515
  Serious: Yes (Other)
  Sender: FDA-Public Use
  Company Number: US-AMGEN-KDL243409

PATIENT
  Age: 56 Year
  Sex: Female

DRUGS (2)
  1. ENBREL [Suspect]
     Indication: RHEUMATOID ARTHRITIS
     Dosage: 50 MG, QWK
     Route: 058
     Dates: start: 20040817, end: 200610
  2. MYCOPHENOLATE MOFETIL [Concomitant]
     Dosage: 2500 MG, QD
     Dates: start: 200402

REACTIONS (2)
  - Ovarian cancer [Unknown]
  - Abdominal neoplasm [Recovered/Resolved]
